FAERS Safety Report 8102092-5 (Version None)
Quarter: 2012Q1

REPORT INFORMATION
  Report Type: 
  Country: None (occurrence: None)
  Receive Date: 20120131
  Receipt Date: 20120124
  Transmission Date: 20120608
  Serious: Yes (Hospitalization)
  Sender: FDA-Public Use
  Company Number: IL-MERCK-1201USA03473

PATIENT
  Age: 75 Year
  Sex: Male

DRUGS (1)
  1. ISENTRESS [Suspect]
     Indication: HIV INFECTION
     Route: 048
     Dates: end: 20120101

REACTIONS (3)
  - CEREBROVASCULAR ACCIDENT [None]
  - PHARYNGEAL INJURY [None]
  - DYSPHAGIA [None]
